FAERS Safety Report 7531352-1 (Version None)
Quarter: 2011Q2

REPORT INFORMATION
  Report Type: 
  Country: None (occurrence: None)
  Receive Date: 20110608
  Receipt Date: 20110525
  Transmission Date: 20111010
  Serious: Yes (Other)
  Sender: FDA-Public Use
  Company Number: PHHY2011NO43243

PATIENT
  Sex: Male

DRUGS (5)
  1. ZOMETA [Suspect]
     Indication: OSTEOPOROSIS
     Route: 051
     Dates: start: 20110107
  2. ZOMETA [Suspect]
     Indication: PROSTATE CANCER METASTATIC
  3. ZOMETA [Suspect]
     Indication: PROSTATE CANCER
     Dates: start: 20100101
  4. TAXOTERE [Concomitant]
  5. PENICILLIN V POTASSIUM [Concomitant]
     Dates: start: 20110501

REACTIONS (3)
  - MOUTH ULCERATION [None]
  - OSTEONECROSIS OF JAW [None]
  - PAIN [None]
